FAERS Safety Report 24653957 (Version 2)
Quarter: 2025Q3

REPORT INFORMATION
  Report Type: Spontaneous
  Country: CN (occurrence: CN)
  Receive Date: 20241122
  Receipt Date: 20250809
  Transmission Date: 20251021
  Serious: Yes (Other)
  Sender: ALEXION PHARMACEUTICALS
  Company Number: CN-ASTRAZENECA-202410GLO026710CN

PATIENT
  Age: 74 Year
  Sex: Female

DRUGS (1)
  1. OMEPRAZOLE [Suspect]
     Active Substance: OMEPRAZOLE
     Indication: Abdominal discomfort
     Dosage: 20 MILLIGRAM, QD
     Route: 065

REACTIONS (3)
  - Hypomagnesaemia [Recovered/Resolved]
  - Hypoparathyroidism [Unknown]
  - Cerebellar syndrome [Unknown]
